FAERS Safety Report 7294337-9 (Version None)
Quarter: 2011Q1

REPORT INFORMATION
  Report Type: 
  Country: None (occurrence: None)
  Receive Date: 20110215
  Receipt Date: 20110208
  Transmission Date: 20110831
  Serious: Yes (Death)
  Sender: FDA-Public Use
  Company Number: US-GENENTECH-313525

PATIENT
  Age: 70 Year
  Sex: Male
  Weight: 92.7 kg

DRUGS (1)
  1. RITUXAN [Suspect]
     Indication: HAIRY CELL LEUKAEMIA
     Dosage: 375 MG/M2, X1
     Route: 042
     Dates: start: 20110203, end: 20110203

REACTIONS (5)
  - DEATH [None]
  - INFUSION RELATED REACTION [None]
  - PNEUMONIA [None]
  - RESPIRATORY DISTRESS [None]
  - LEUKOPENIA [None]
